FAERS Safety Report 24640179 (Version 2)
Quarter: 2025Q3

REPORT INFORMATION
  Report Type: Report from Study
  Country: US (occurrence: US)
  Receive Date: 20241120
  Receipt Date: 20250803
  Transmission Date: 20251020
  Serious: Yes (Hospitalization, Other)
  Sender: ALEXION PHARMACEUTICALS
  Company Number: US-AstraZeneca-CH-00746532A

PATIENT
  Age: 63 Year
  Sex: Female

DRUGS (16)
  1. OLAPARIB [Suspect]
     Active Substance: OLAPARIB
     Indication: Non-small cell lung cancer stage IV
     Dosage: 300 MILLIGRAM, BID
     Dates: start: 20230310
  2. TAGRISSO [Suspect]
     Active Substance: OSIMERTINIB
  3. CALCITRIOL [Concomitant]
     Active Substance: CALCITRIOL
     Route: 065
  4. CALCIUM [Concomitant]
     Active Substance: CALCIUM
     Route: 065
  5. ENOXAPARIN [Concomitant]
     Active Substance: ENOXAPARIN
     Route: 065
  6. FERROUS SULFATE [Concomitant]
     Active Substance: FERROUS SULFATE
     Route: 065
  7. LABETALOL [Concomitant]
     Active Substance: LABETALOL
     Route: 065
  8. MAGNESIUM [Concomitant]
     Active Substance: MAGNESIUM
     Route: 065
  9. PANTOPRAZOLE [Concomitant]
     Active Substance: PANTOPRAZOLE
     Route: 065
  10. PREDNISONE [Concomitant]
     Active Substance: PREDNISONE
     Route: 065
  11. ROSUVASTATIN [Concomitant]
     Active Substance: ROSUVASTATIN
     Route: 065
  12. SENNA [Concomitant]
     Active Substance: SENNOSIDES
     Route: 065
  13. TACROLIMUS [Concomitant]
     Active Substance: TACROLIMUS
     Route: 065
  14. VITAMIN C [Concomitant]
     Active Substance: ASCORBIC ACID
     Route: 065
  15. VITAMIN D2 [Concomitant]
     Active Substance: ERGOCALCIFEROL
     Route: 065
  16. WARFARIN [Concomitant]
     Active Substance: WARFARIN
     Route: 065

REACTIONS (2)
  - Fall [Recovering/Resolving]
  - Hip fracture [Recovering/Resolving]

NARRATIVE: CASE EVENT DATE: 20241013
